FAERS Safety Report 6530834-9 (Version None)
Quarter: 2010Q1

REPORT INFORMATION
  Report Type: 
  Country: None (occurrence: None)
  Receive Date: 20100108
  Receipt Date: 20090326
  Transmission Date: 20100710
  Serious: No
  Sender: FDA-Public Use
  Company Number: A0775634A

PATIENT
  Age: 71 Year
  Sex: Female

DRUGS (6)
  1. LOVAZA [Suspect]
     Indication: BLOOD CHOLESTEROL INCREASED
     Dosage: 1G TWICE PER DAY
     Route: 048
     Dates: start: 20090101
  2. VITAMIN D3 [Concomitant]
  3. CALCIUM [Concomitant]
  4. VITAMIN B50 [Concomitant]
  5. Q10 [Concomitant]
  6. FLAX OIL [Concomitant]

REACTIONS (3)
  - MYALGIA [None]
  - OROPHARYNGEAL PAIN [None]
  - RASH [None]
